FAERS Safety Report 19366950 (Version 1)
Quarter: 2021Q2

REPORT INFORMATION
  Report Type: Spontaneous
  Country: US (occurrence: US)
  Receive Date: 20210603
  Receipt Date: 20210603
  Transmission Date: 20210717
  Serious: No
  Sender: FDA-Public Use
  Company Number: US-ELI_LILLY_AND_COMPANY-US202105013012

PATIENT

DRUGS (2)
  1. ETESEVIMAB 700MG [Suspect]
     Active Substance: ETESEVIMAB
     Indication: COVID-19
     Dosage: UNK, UNKNOWN
     Route: 042
  2. BAMLANIVIMAB 700MG [Suspect]
     Active Substance: BAMLANIVIMAB
     Indication: COVID-19
     Dosage: UNK, UNKNOWN
     Route: 042

REACTIONS (3)
  - Cough [Unknown]
  - Ageusia [Unknown]
  - Anosmia [Unknown]

NARRATIVE: CASE EVENT DATE: 202103
